FAERS Safety Report 22539562 (Version 3)
Quarter: 2023Q2

REPORT INFORMATION
  Report Type: Report from Study
  Country: JP (occurrence: JP)
  Receive Date: 20230609
  Receipt Date: 20230628
  Transmission Date: 20230722
  Serious: Yes (Hospitalization)
  Sender: FDA-Public Use
  Company Number: JP-ASTELLAS-2023JP006607

PATIENT
  Age: 51 Year
  Sex: Female
  Weight: 55.4 kg

DRUGS (17)
  1. GILTERITINIB [Suspect]
     Active Substance: GILTERITINIB
     Indication: Acute myeloid leukaemia
     Route: 065
     Dates: start: 20201022, end: 20201030
  2. GILTERITINIB [Suspect]
     Active Substance: GILTERITINIB
     Route: 065
     Dates: start: 20201214, end: 20201227
  3. GILTERITINIB [Suspect]
     Active Substance: GILTERITINIB
     Route: 065
     Dates: start: 20210120, end: 20210202
  4. GILTERITINIB [Suspect]
     Active Substance: GILTERITINIB
     Route: 065
     Dates: start: 20210608, end: 20210629
  5. GILTERITINIB [Suspect]
     Active Substance: GILTERITINIB
     Route: 065
     Dates: start: 20210706, end: 20230514
  6. IDARUBICIN [Suspect]
     Active Substance: IDARUBICIN
     Indication: Acute myeloid leukaemia
     Dosage: 12 MG/M2, ONCE DAILY, INTRAVENOUS FOR 3 CONSECUTIVE DAYS FROM DAY 1
     Route: 042
     Dates: start: 20201015, end: 20201017
  7. CYTARABINE [Suspect]
     Active Substance: CYTARABINE
     Indication: Acute myeloid leukaemia
     Dosage: REMISSION INDUCTION THERAPY: 100 MG/M2, ONCE DAILY, INTRAVENOUS FOR 7 CONSECUTIVE DAYS FROM DAY 1
     Route: 042
     Dates: start: 20201015, end: 20201022
  8. CYTARABINE [Suspect]
     Active Substance: CYTARABINE
     Dosage: CONSOLIDATION THERAPY: 1.5 G/ M2, INTRAVENOUS TWICE DAILY EVERY 12 HOURS ON DAY1, 3, 5
     Route: 042
     Dates: start: 20201214, end: 20201219
  9. CYTARABINE [Suspect]
     Active Substance: CYTARABINE
     Dosage: CONSOLIDATION THERAPY: 1.5 G/ M2, INTRAVENOUS TWICE DAILY EVERY 12 HOURS ON DAY1, 3, 5
     Route: 042
     Dates: start: 20210120, end: 20210125
  10. VONOPRAZAN FUMARATE [Concomitant]
     Active Substance: VONOPRAZAN FUMARATE
     Indication: Gastric mucosal lesion
     Route: 048
     Dates: start: 20210403, end: 20230607
  11. SULFAMETHOXAZOLE\TRIMETHOPRIM [Concomitant]
     Active Substance: SULFAMETHOXAZOLE\TRIMETHOPRIM
     Indication: Infection prophylaxis
     Route: 048
     Dates: start: 20210419
  12. PETROLATUM [Concomitant]
     Active Substance: PETROLATUM
     Indication: Seasonal allergy
     Dosage: ADEQUATE DOSE, ONCE DAILY
     Route: 061
     Dates: start: 202301
  13. Santeson [Concomitant]
     Indication: Seasonal allergy
     Dosage: ADEQUATE DOSE, ONCE DAILY
     Route: 061
     Dates: start: 20230329
  14. UFENAMATE [Concomitant]
     Active Substance: UFENAMATE
     Indication: Seasonal allergy
     Dosage: ADEQUATE DOSE, ONCE DAILY
     Route: 061
     Dates: start: 20230329
  15. TACROLIMUS [Concomitant]
     Active Substance: TACROLIMUS
     Indication: Seasonal allergy
     Dosage: ADEQUATE DOSE, ONCE DAILY
     Route: 061
     Dates: start: 20230329
  16. DIFLUPREDNATE [Concomitant]
     Active Substance: DIFLUPREDNATE
     Indication: Seasonal allergy
     Dosage: ADEQUATE DOSE, TWICE DAILY
     Route: 061
     Dates: start: 20230329
  17. ZINC OXIDE [Concomitant]
     Active Substance: ZINC OXIDE
     Indication: Seasonal allergy
     Dosage: ADEQUATE DOSE, ONCE DAILY
     Route: 061
     Dates: start: 20230329

REACTIONS (1)
  - Gastric cancer [Recovered/Resolved]

NARRATIVE: CASE EVENT DATE: 20230606
